FAERS Safety Report 4700152-X (Version None)
Quarter: 2005Q2

REPORT INFORMATION
  Report Type: 
  Country: None (occurrence: None)
  Receive Date: 20050627
  Receipt Date: 20050615
  Transmission Date: 20051028
  Serious: Yes (Death)
  Sender: FDA-Public Use
  Company Number: JP-JNJFOC-20050106959

PATIENT
  Sex: Male

DRUGS (14)
  1. REMICADE [Suspect]
     Route: 042
     Dates: start: 20041126
  2. REMICADE [Suspect]
     Route: 042
     Dates: start: 20041126
  3. REMICADE [Suspect]
     Indication: RHEUMATOID ARTHRITIS
     Route: 042
     Dates: start: 20041126
  4. METHOTREXATE [Concomitant]
     Route: 049
  5. METHOTREXATE [Concomitant]
     Route: 049
  6. HYPEN [Concomitant]
     Route: 049
  7. MOHRUS TAPE [Concomitant]
  8. FOLIAMIN [Concomitant]
     Route: 049
  9. SOLON [Concomitant]
     Route: 049
  10. TAKEPRON [Concomitant]
     Route: 049
  11. FERO-GRADUMET [Concomitant]
     Route: 049
  12. LAMISIL [Concomitant]
     Route: 049
  13. PYRIDOXAL [Concomitant]
     Route: 049
  14. ISCOTIN [Concomitant]
     Route: 049

REACTIONS (2)
  - DRUG INEFFECTIVE [None]
  - SUDDEN DEATH [None]
